FAERS Safety Report 21370762 (Version 1)
Quarter: 2022Q3

REPORT INFORMATION
  Report Type: Spontaneous
  Country: US (occurrence: US)
  Receive Date: 20220923
  Receipt Date: 20220923
  Transmission Date: 20221026
  Serious: No
  Sender: FDA-Public Use
  Company Number: US-ELI_LILLY_AND_COMPANY-US202208009289

PATIENT
  Age: 62 Year
  Sex: Male

DRUGS (1)
  1. HUMALOG [Suspect]
     Active Substance: INSULIN LISPRO
     Indication: Type 1 diabetes mellitus
     Dosage: UNK UNK, UNKNOWN
     Route: 058

REACTIONS (5)
  - COVID-19 [Not Recovered/Not Resolved]
  - Intervertebral disc protrusion [Unknown]
  - Road traffic accident [Unknown]
  - Concussion [Unknown]
  - Vision blurred [Unknown]

NARRATIVE: CASE EVENT DATE: 20220301
